FAERS Safety Report 5041730-0 (Version None)
Quarter: 2006Q2

REPORT INFORMATION
  Report Type: 
  Country: None (occurrence: None)
  Receive Date: 20060630
  Receipt Date: 20060621
  Transmission Date: 20061013
  Serious: Yes (Hospitalization)
  Sender: FDA-Public Use
  Company Number: HQWYE339822JUN06

PATIENT
  Age: 13 Year
  Sex: Female

DRUGS (1)
  1. PREMARIN [Suspect]
     Indication: OESTROGEN REPLACEMENT THERAPY
     Dosage: 0.625 MG 1X PER 1 DAY, ORAL
     Route: 048
     Dates: start: 20041201, end: 20060529

REACTIONS (3)
  - ABDOMINAL DISTENSION [None]
  - BLOOD ALBUMIN DECREASED [None]
  - OEDEMA PERIPHERAL [None]
